FAERS Safety Report 5915031-X (Version None)
Quarter: 2008Q4

REPORT INFORMATION
  Report Type: 
  Country: None (occurrence: None)
  Receive Date: 20081010
  Receipt Date: 20081002
  Transmission Date: 20090506
  Serious: Yes (Hospitalization)
  Sender: FDA-Public Use
  Company Number: US-ABBOTT-08P-163-0436089-00

PATIENT
  Weight: 77.18 kg

DRUGS (8)
  1. HUMIRA [Suspect]
     Indication: RHEUMATOID ARTHRITIS
     Route: 058
     Dates: start: 20040401
  2. HUMIRA [Suspect]
  3. OROMORPH [Concomitant]
     Indication: OSTEOARTHRITIS
     Route: 048
  4. FLU VACCINE [Concomitant]
     Indication: DRUG USE FOR UNKNOWN INDICATION
  5. ZOLEDRONIC ACID [Concomitant]
     Indication: OSTEOARTHRITIS
     Route: 042
     Dates: start: 20080528
  6. MORPHINE SULFATE INJ [Concomitant]
     Indication: PAIN
     Route: 048
  7. LORTADINE D [Concomitant]
     Indication: SEASONAL ALLERGY
     Route: 048
  8. GABAPENTIN [Concomitant]
     Indication: OSTEOARTHRITIS
     Route: 048

REACTIONS (22)
  - BRONCHITIS [None]
  - CATARACT [None]
  - CONSTIPATION [None]
  - COUGH [None]
  - DRY EYE [None]
  - GALLBLADDER DISORDER [None]
  - GASTRIC DISORDER [None]
  - INTERVERTEBRAL DISC PROTRUSION [None]
  - INTERVERTEBRAL DISC SPACE NARROWING [None]
  - JOINT SWELLING [None]
  - LYMPHOEDEMA [None]
  - MENISCUS LESION [None]
  - OEDEMA PERIPHERAL [None]
  - OSTEOARTHRITIS [None]
  - OSTEOPOROSIS [None]
  - PNEUMONIA [None]
  - RESPIRATORY TRACT INFECTION [None]
  - RETINAL TEAR [None]
  - SJOGREN'S SYNDROME [None]
  - SPINAL COLUMN STENOSIS [None]
  - SPINAL OSTEOARTHRITIS [None]
  - SPUTUM DISCOLOURED [None]
